FAERS Safety Report 26130543 (Version 1)
Quarter: 2025Q4

REPORT INFORMATION
  Report Type: Spontaneous
  Country: EU (occurrence: EU)
  Receive Date: 20251208
  Receipt Date: 20251208
  Transmission Date: 20260117
  Serious: Yes (Hospitalization)
  Sender: TEVA
  Company Number: None

PATIENT
  Age: 53 Year
  Sex: Male
  Weight: 78 kg

DRUGS (4)
  1. SULFAMETHOXAZOLE\TRIMETHOPRIM [Suspect]
     Active Substance: SULFAMETHOXAZOLE\TRIMETHOPRIM
     Indication: Antifungal prophylaxis
     Dosage: 3 DOSES/WEEK (MONDAY, WEDNESDAY, FRIDAY); COTRIMOXAZOLE TEVA 800 MG/160 MG
     Route: 048
     Dates: start: 20251010, end: 20251103
  2. CARBOPLATIN [Suspect]
     Active Substance: CARBOPLATIN
     Indication: Lung cancer metastatic
     Dosage: AUC 5/CYCLE 3RD TREATMENT
     Route: 042
     Dates: start: 20251031, end: 20251031
  3. PEMETREXED [Suspect]
     Active Substance: PEMETREXED
     Indication: Lung cancer metastatic
     Dosage: 500 MG/M?/CYCLE 3RD CYCLE
     Route: 042
     Dates: start: 20251031, end: 20251031
  4. KEYTRUDA [Suspect]
     Active Substance: PEMBROLIZUMAB
     Indication: Lung cancer metastatic
     Dosage: 200 MG/CYCLE 3RD CYCLE
     Route: 042
     Dates: start: 20251031, end: 20251031

REACTIONS (3)
  - Hepatocellular injury [Recovered/Resolved]
  - Rash maculo-papular [Recovered/Resolved]
  - Pyrexia [Recovered/Resolved]

NARRATIVE: CASE EVENT DATE: 20251101
